FAERS Safety Report 8536581-6 (Version None)
Quarter: 2012Q3

REPORT INFORMATION
  Report Type: 
  Country: None (occurrence: None)
  Receive Date: 20120725
  Receipt Date: 20120716
  Transmission Date: 20120928
  Serious: Yes (Hospitalization)
  Sender: FDA-Public Use
  Company Number: ES-VERTEX PHARMACEUTICALS INC.-000000000000000568

PATIENT
  Age: 63 Year
  Sex: Female

DRUGS (5)
  1. RIBAVIRIN [Concomitant]
     Indication: HEPATITIS C
     Dates: start: 20120320
  2. INCIVO [Suspect]
     Indication: HEPATITIS C
     Dosage: DOSAGE FORM: TABLET
     Route: 048
     Dates: start: 20120320, end: 20120417
  3. PEGINTERFERON ALFA-2A [Concomitant]
     Indication: HEPATITIS C
     Dates: start: 20120320
  4. PEGINTERFERON ALFA-2A [Concomitant]
  5. RIBAVIRIN [Concomitant]

REACTIONS (10)
  - ASCITES [None]
  - HYPERGLYCAEMIA [None]
  - RASH [None]
  - ANAEMIA [None]
  - GENERAL PHYSICAL HEALTH DETERIORATION [None]
  - RED BLOOD CELL COUNT ABNORMAL [None]
  - ASTERIXIS [None]
  - DYSPEPSIA [None]
  - PLATELET DISORDER [None]
  - WHITE BLOOD CELL COUNT ABNORMAL [None]
